FAERS Safety Report 5679700-1 (Version None)
Quarter: 2008Q1

REPORT INFORMATION
  Report Type: 
  Country: None (occurrence: None)
  Receive Date: 20080321
  Receipt Date: 20080313
  Transmission Date: 20080703
  Serious: No
  Sender: FDA-Public Use
  Company Number: TPH-00026

PATIENT
  Age: 24 Year
  Sex: Female

DRUGS (1)
  1. TRIKVILAR [Suspect]
     Indication: DRUG USE FOR UNKNOWN INDICATION
     Dosage: 1 DF ORAL
     Route: 048

REACTIONS (2)
  - ANGIOPATHY [None]
  - OVARIAN DISORDER [None]
